FAERS Safety Report 11137696 (Version 1)
Quarter: 2015Q2

REPORT INFORMATION
  Report Type: Spontaneous
  Country: US (occurrence: US)
  Receive Date: 20150526
  Receipt Date: 20150526
  Transmission Date: 20150821
  Serious: Yes (Congenital Anomaly)
  Sender: FDA-Public Use
  Company Number: US-GLAXOSMITHKLINE-US2015GSK069809

PATIENT
  Sex: Male

DRUGS (2)
  1. ZOFRAN [Suspect]
     Active Substance: ONDANSETRON HYDROCHLORIDE
     Indication: NAUSEA
     Dosage: 2 OR 4 MG ORAL BID
     Route: 064
     Dates: start: 201309, end: 20140311
  2. ZOFRAN [Suspect]
     Active Substance: ONDANSETRON HYDROCHLORIDE
     Dosage: 4 MG INTRAVENOUS WHILE HOSPITALIZED
     Route: 064
     Dates: start: 201309, end: 20140311

REACTIONS (3)
  - Foetal exposure during pregnancy [Unknown]
  - Knee deformity [Unknown]
  - Low birth weight baby [Unknown]

NARRATIVE: CASE EVENT DATE: 201309
